FAERS Safety Report 24449094 (Version 2)
Quarter: 2024Q4

REPORT INFORMATION
  Report Type: Spontaneous
  Country: US (occurrence: US)
  Receive Date: 20241017
  Receipt Date: 20241017
  Transmission Date: 20250115
  Serious: Yes (Hospitalization)
  Sender: ROCHE
  Company Number: US-ROCHE-10000104748

PATIENT
  Sex: Female

DRUGS (1)
  1. ACTEMRA [Suspect]
     Active Substance: TOCILIZUMAB
     Indication: Autoimmune disorder
     Route: 058
     Dates: start: 202404

REACTIONS (8)
  - Dizziness [Recovered/Resolved]
  - Pruritus [Unknown]
  - Skin mass [Unknown]
  - Skin disorder [Unknown]
  - Loss of consciousness [Unknown]
  - Illness [Unknown]
  - Infection [Unknown]
  - Erythema [Unknown]
